FAERS Safety Report 7033938-X (Version None)
Quarter: 2010Q4

REPORT INFORMATION
  Report Type: 
  Country: None (occurrence: None)
  Receive Date: 20101007
  Receipt Date: 20101005
  Transmission Date: 20110411
  Serious: Yes (Hospitalization, Other)
  Sender: FDA-Public Use
  Company Number: GB-MERCK-1006GBR00063

PATIENT
  Age: 53 Year
  Sex: Male
  Weight: 70 kg

DRUGS (2)
  1. INVANZ [Suspect]
     Indication: LIVER ABSCESS
     Route: 042
     Dates: start: 20090320, end: 20090407
  2. METRONIDAZOLE [Concomitant]
     Indication: LIVER ABSCESS
     Route: 042
     Dates: start: 20090326, end: 20090402

REACTIONS (3)
  - ANAEMIA [None]
  - BRAIN ABSCESS [None]
  - OROPHARYNGEAL PAIN [None]
